FAERS Safety Report 4549418-7 (Version None)
Quarter: 2005Q1

REPORT INFORMATION
  Report Type: 
  Country: None (occurrence: None)
  Receive Date: 20050111
  Receipt Date: 20041223
  Transmission Date: 20050727
  Serious: Yes (Hospitalization)
  Sender: FDA-Public Use
  Company Number: 200414835FR

PATIENT
  Age: 66 Year
  Sex: Male

DRUGS (5)
  1. LOVENOX [Suspect]
     Route: 058
     Dates: start: 20040425, end: 20040615
  2. HEPARIN ^CHOAY^ [Suspect]
     Route: 042
     Dates: start: 20040319, end: 20040619
  3. LYSANXIA [Concomitant]
  4. TERCIAN [Concomitant]
  5. MUCOMYST [Concomitant]

REACTIONS (5)
  - ANAPHYLACTIC SHOCK [None]
  - ANOXIC ENCEPHALOPATHY [None]
  - CARDIO-RESPIRATORY ARREST [None]
  - SEPTIC SHOCK [None]
  - THROMBOCYTOPENIA [None]
